FAERS Safety Report 9956404 (Version 3)
Quarter: 2016Q1

REPORT INFORMATION
  Report Type: Spontaneous
  Country: PR (occurrence: PR)
  Receive Date: 20140304
  Receipt Date: 20160201
  Transmission Date: 20160526
  Serious: No
  Sender: FDA-Public Use
  Company Number: PR-ABBVIE-12P-131-1018321-00

PATIENT
  Sex: Female
  Weight: 57.2 kg

DRUGS (3)
  1. HUMIRA [Suspect]
     Active Substance: ADALIMUMAB
     Indication: PSORIATIC ARTHROPATHY
     Route: 058
  2. TROPOL [Concomitant]
     Route: 048
  3. TROPOL [Concomitant]
     Indication: HYPERTENSION
     Route: 048

REACTIONS (2)
  - Drug ineffective [Recovered/Resolved]
  - Sinusitis [Not Recovered/Not Resolved]
